FAERS Safety Report 8573202-0 (Version None)
Quarter: 2012Q3

REPORT INFORMATION
  Report Type: 
  Country: None (occurrence: None)
  Receive Date: 20120806
  Receipt Date: 20120730
  Transmission Date: 20120928
  Serious: Yes (Hospitalization, Other)
  Sender: FDA-Public Use
  Company Number: US-BAYER-2012-062004

PATIENT
  Age: 57 Year
  Sex: Female
  Weight: 54 kg

DRUGS (6)
  1. BETASERON [Suspect]
     Dosage: 0.187 MG, QOD
     Route: 058
     Dates: end: 20120611
  2. BACLOFEN [Concomitant]
     Indication: MUSCLE SPASTICITY
     Dosage: 10 MG, BID
     Dates: start: 19950101
  3. AMPYRA [Concomitant]
     Indication: MULTIPLE SCLEROSIS
     Dosage: 10 MG, BID
     Dates: start: 20100101
  4. BETASERON [Suspect]
     Dosage: 0.125 MG, QOD
     Route: 058
  5. BETASERON [Suspect]
     Indication: MULTIPLE SCLEROSIS
     Dosage: 0.062 MG, QOD
     Route: 058
     Dates: start: 20120605
  6. GABAPENTIN [Concomitant]
     Indication: PAIN
     Dosage: 900 MG, TID
     Dates: start: 19950101

REACTIONS (4)
  - HEADACHE [None]
  - MOBILITY DECREASED [None]
  - DIARRHOEA [None]
  - PYREXIA [None]
